FAERS Safety Report 9349798 (Version 3)
Quarter: 2013Q3

REPORT INFORMATION
  Report Type: Spontaneous
  Country: DE (occurrence: None)
  Receive Date: 20130611
  Receipt Date: 20130828
  Transmission Date: 20140515
  Serious: Yes (Death, Hospitalization)
  Sender: FDA-Public Use
  Company Number: 2013DE001698

PATIENT
  Age: 52 Year
  Sex: Male

DRUGS (2)
  1. ICLUSIG [Suspect]
     Indication: CHRONIC MYELOID LEUKAEMIA
     Route: 048
  2. ICLUSIG [Suspect]
     Indication: CHROMOSOME ANALYSIS ABNORMAL
     Route: 048

REACTIONS (7)
  - Retinal vein thrombosis [None]
  - Ischaemic cerebral infarction [None]
  - Respiratory failure [None]
  - Brain death [None]
  - Brain stem haemorrhage [None]
  - Hypoxic-ischaemic encephalopathy [None]
  - General physical health deterioration [None]
